FAERS Safety Report 8620620-8 (Version None)
Quarter: 2012Q3

REPORT INFORMATION
  Report Type: 
  Country: None (occurrence: None)
  Receive Date: 20120824
  Receipt Date: 20120814
  Transmission Date: 20120928
  Serious: Yes (Death, Hospitalization, Other)
  Sender: FDA-Public Use
  Company Number: US-ACTELION-A-NJ2012-65925

PATIENT
  Age: 31 Year
  Sex: Female

DRUGS (18)
  1. EPOPROSTENOL SODIUM [Suspect]
     Dosage: 30 NG/KG, PER MIN
     Route: 041
     Dates: start: 20101019, end: 20120101
  2. REMERON [Concomitant]
     Dosage: UNK
     Dates: start: 20120430
  3. DIGOXIN [Concomitant]
     Dosage: UNK
     Dates: start: 20080226
  4. FERROUS SULFATE TAB [Concomitant]
  5. REVATIO [Concomitant]
     Dosage: UNK
     Dates: start: 20080221
  6. ZANTAC [Concomitant]
  7. POTASSIUM CHLORIDE [Concomitant]
  8. EPOPROSTENOL SODIUM [Suspect]
     Indication: PULMONARY ARTERIAL HYPERTENSION
     Dosage: 33 NG/KG, PER MIN
     Route: 041
     Dates: start: 20120101, end: 20120617
  9. NAFCILLIN [Suspect]
  10. HIBICLENS [Concomitant]
     Dosage: UNK
     Dates: start: 20100701
  11. TRACLEER [Suspect]
     Indication: PULMONARY ARTERIAL HYPERTENSION
     Dosage: UNK
     Route: 048
     Dates: start: 20080408
  12. COUMADIN [Concomitant]
     Dosage: UNK
     Dates: start: 20080319
  13. SPIRONOLACTONE [Concomitant]
     Dosage: UNK
     Dates: start: 20100614
  14. CELEXA [Concomitant]
  15. ZOFRAN [Concomitant]
     Dosage: UNK
     Dates: start: 20120501
  16. FUROSEMIDE [Concomitant]
     Dosage: UNK
     Dates: start: 20080903
  17. OXYCODONE HCL [Concomitant]
  18. OXYGEN [Concomitant]
     Dosage: UNK
     Dates: start: 20090401

REACTIONS (35)
  - MECHANICAL VENTILATION [None]
  - METABOLIC ACIDOSIS [None]
  - COAGULOPATHY [None]
  - THROMBOCYTOPENIA [None]
  - FLUID OVERLOAD [None]
  - ABDOMINAL DISTENSION [None]
  - PNEUMONIA [None]
  - ENDOCARDITIS [None]
  - CARDIOGENIC SHOCK [None]
  - SUBARACHNOID HAEMORRHAGE [None]
  - ADRENAL INSUFFICIENCY [None]
  - RENAL FAILURE [None]
  - PULMONARY OEDEMA [None]
  - ATRIAL FLUTTER [None]
  - RIGHT VENTRICULAR FAILURE [None]
  - HYPOXIA [None]
  - SUBDURAL HAEMORRHAGE [None]
  - MYOPATHY [None]
  - PYREXIA [None]
  - HAEMORRHAGE [None]
  - BLOOD GLUCOSE DECREASED [None]
  - VENTRICULAR FIBRILLATION [None]
  - RASH [None]
  - PULMONARY ARTERIAL HYPERTENSION [None]
  - RESPIRATORY ACIDOSIS [None]
  - PULMONARY ARTERIAL WEDGE PRESSURE INCREASED [None]
  - DISSEMINATED INTRAVASCULAR COAGULATION [None]
  - CONDITION AGGRAVATED [None]
  - RESPIRATORY FAILURE [None]
  - DYSPNOEA [None]
  - DEVICE RELATED SEPSIS [None]
  - BACTERAEMIA [None]
  - ISCHAEMIC HEPATITIS [None]
  - EPISTAXIS [None]
  - HYPOTENSION [None]
